FAERS Safety Report 7071075-9 (Version None)
Quarter: 2010Q4

REPORT INFORMATION
  Report Type: 
  Country: None (occurrence: None)
  Receive Date: 20101029
  Receipt Date: 20101026
  Transmission Date: 20110411
  Serious: No
  Sender: FDA-Public Use
  Company Number: US-PFIZER INC-2010136369

PATIENT
  Sex: Male
  Weight: 68.027 kg

DRUGS (3)
  1. TIKOSYN [Suspect]
     Indication: ATRIAL FIBRILLATION
     Dosage: 500 UG, 2X/DAY
     Route: 048
     Dates: start: 20100901
  2. POTASSIUM [Concomitant]
     Indication: HYPERTENSION
     Dosage: 20 MEQ, 1X/DAY
  3. AVAPRO [Concomitant]
     Dosage: 150 MG, 1X/DAY
     Route: 048

REACTIONS (1)
  - INSOMNIA [None]
